FAERS Safety Report 17058155 (Version 4)
Quarter: 2020Q2

REPORT INFORMATION
  Report Type: Spontaneous
  Country: US (occurrence: US)
  Receive Date: 20191121
  Receipt Date: 20200515
  Transmission Date: 20200713
  Serious: Yes (Disabling)
  Sender: FDA-Public Use
  Company Number: US-JNJFOC-20191128084

PATIENT
  Age: 52 Year
  Sex: Female
  Weight: 56.75 kg

DRUGS (2)
  1. REMICADE [Suspect]
     Active Substance: INFLIXIMAB
     Indication: IDIOPATHIC ORBITAL INFLAMMATION
     Route: 042
     Dates: start: 201712, end: 201805
  2. PREDNISONE. [Concomitant]
     Active Substance: PREDNISONE
     Route: 048
     Dates: start: 201804

REACTIONS (6)
  - Eye pain [Unknown]
  - Product use in unapproved indication [Unknown]
  - Cerebral toxoplasmosis [Not Recovered/Not Resolved]
  - Drug ineffective [Unknown]
  - Eye swelling [Unknown]
  - Off label use [Unknown]

NARRATIVE: CASE EVENT DATE: 201712
